FAERS Safety Report 6358310-7 (Version None)
Quarter: 2009Q3

REPORT INFORMATION
  Report Type: 
  Country: None (occurrence: None)
  Receive Date: 20090916
  Receipt Date: 20090904
  Transmission Date: 20100115
  Serious: Yes (Other)
  Sender: FDA-Public Use
  Company Number: PHHY2009BR37650

PATIENT
  Sex: Male

DRUGS (1)
  1. DIOVAN HCT [Suspect]
     Indication: ARRHYTHMIA
     Dosage: 1 DF (80/12.5 MG) EVERY NIGHT

REACTIONS (2)
  - ARRHYTHMIA [None]
  - DRUG DOSE OMISSION [None]
